FAERS Safety Report 23315911 (Version 1)
Quarter: 2023Q4

REPORT INFORMATION
  Report Type: Spontaneous
  Country: US (occurrence: US)
  Receive Date: 20231219
  Receipt Date: 20231219
  Transmission Date: 20240109
  Serious: No
  Sender: FDA-Public Use
  Company Number: US-MYLANLABS-2023M1131069

PATIENT
  Sex: Female

DRUGS (1)
  1. XANAX [Suspect]
     Active Substance: ALPRAZOLAM
     Indication: Anxiety
     Dosage: 2 DOSAGE FORM, BID (TAKE 2 TABLETS BY MOUTH TWICE DAILY AS NEEDED FOR ANXIETY)
     Route: 048

REACTIONS (1)
  - Off label use [Unknown]
